FAERS Safety Report 22141368 (Version 1)
Quarter: 2023Q1

REPORT INFORMATION
  Report Type: Spontaneous
  Country: US (occurrence: None)
  Receive Date: 20230325
  Receipt Date: 20230325
  Transmission Date: 20230418
  Serious: Yes (Hospitalization, Disabling, Other)
  Sender: FDA-Public Use
  Company Number: None

PATIENT
  Age: 55 Year
  Sex: Female
  Weight: 96.75 kg

DRUGS (8)
  1. ARTIFICIAL TEARS LUBRICANT EYE DROPS (CARBOXYMETHYLCELLULOSE SODIUM) [Suspect]
     Active Substance: CARBOXYMETHYLCELLULOSE SODIUM
     Indication: Dry eye
     Dosage: FREQUENCY : 4 TIMES A DAY;?
     Route: 047
     Dates: start: 20220526
  2. LISINOPRIL [Concomitant]
     Active Substance: LISINOPRIL
  3. LAMOTRIGINE [Concomitant]
     Active Substance: LAMOTRIGINE
  4. PROZAC [Concomitant]
     Active Substance: FLUOXETINE HYDROCHLORIDE
  5. HYDROCHLOROTHIAZIDE [Concomitant]
     Active Substance: HYDROCHLOROTHIAZIDE
  6. FERMISOZIDE [Concomitant]
  7. POTASSIUM [Concomitant]
     Active Substance: POTASSIUM
  8. TIMODOL DROPS FOR EYES [Concomitant]

REACTIONS (11)
  - Instillation site pruritus [None]
  - Vision blurred [None]
  - Photophobia [None]
  - Foreign body sensation in eyes [None]
  - Ulcerative keratitis [None]
  - Eye infection bacterial [None]
  - Eye injury [None]
  - Blindness unilateral [None]
  - Refusal of treatment by patient [None]
  - Renal disorder [None]
  - Urinary tract disorder [None]

NARRATIVE: CASE EVENT DATE: 20220526
